FAERS Safety Report 5124979-8 (Version None)
Quarter: 2006Q4

REPORT INFORMATION
  Report Type: 
  Country: None (occurrence: None)
  Receive Date: 20061011
  Receipt Date: 20061003
  Transmission Date: 20070319
  Serious: Yes (Other)
  Sender: FDA-Public Use
  Company Number: US-GLAXOSMITHKLINE-A0622983A

PATIENT
  Sex: Female

DRUGS (15)
  1. PAXIL [Suspect]
     Indication: MAJOR DEPRESSION
     Dosage: 10MG PER DAY
     Route: 048
     Dates: start: 19970101
  2. LISINOPRIL [Concomitant]
  3. SPIRONOLACTONE [Concomitant]
  4. LASIX [Concomitant]
  5. POTASSIUM CHLORIDE [Concomitant]
  6. LIPITOR [Concomitant]
  7. NITROQUICK [Concomitant]
  8. LEVOTHYROXIN [Concomitant]
  9. MAXAIR [Concomitant]
  10. AEROBID [Concomitant]
  11. SINGULAIR [Concomitant]
  12. KLONOPIN [Concomitant]
  13. TRILEPTAL [Concomitant]
  14. SEROQUEL [Concomitant]
  15. XANAX [Concomitant]

REACTIONS (4)
  - ALCOHOL USE [None]
  - PARAESTHESIA [None]
  - PERSONALITY CHANGE [None]
  - SUICIDE ATTEMPT [None]
